FAERS Safety Report 17865679 (Version 1)
Quarter: 2020Q2

REPORT INFORMATION
  Report Type: Spontaneous
  Country: FR (occurrence: FR)
  Receive Date: 20200605
  Receipt Date: 20200605
  Transmission Date: 20200714
  Serious: Yes (Hospitalization, Other)
  Sender: FDA-Public Use
  Company Number: FR-MYLANLABS-2020M1054123

PATIENT
  Age: 14 Year
  Sex: Female
  Weight: 74 kg

DRUGS (2)
  1. LOXAPAC                            /00401802/ [Suspect]
     Active Substance: LOXAPINE SUCCINATE
     Indication: PRODUCT USED FOR UNKNOWN INDICATION
     Dosage: UNK
     Route: 048
     Dates: start: 20191028, end: 20191028
  2. QUETIAPINE. [Suspect]
     Active Substance: QUETIAPINE
     Indication: PRODUCT USED FOR UNKNOWN INDICATION
     Dosage: UNK
     Route: 048
     Dates: start: 20191028, end: 20191028

REACTIONS (3)
  - Tachycardia [Unknown]
  - Coma [Unknown]
  - Suicide attempt [Unknown]

NARRATIVE: CASE EVENT DATE: 20191028
